FAERS Safety Report 8600432-1 (Version None)
Quarter: 2012Q3

REPORT INFORMATION
  Report Type: 
  Country: None (occurrence: None)
  Receive Date: 20120817
  Receipt Date: 20120804
  Transmission Date: 20120928
  Serious: Yes (Death, Hospitalization, Other)
  Sender: FDA-Public Use
  Company Number: JO-PAR PHARMACEUTICAL, INC-2012SCPR004560

PATIENT

DRUGS (5)
  1. VENLAFAXINE HYDROCHOLRIDE [Suspect]
     Indication: ACUTE PSYCHOSIS
     Dosage: 75 MG, QD
     Route: 048
  2. QUETIAPINE [Suspect]
     Indication: ACUTE PSYCHOSIS
     Dosage: 300 MG, QD
     Route: 048
  3. LAMOTRIGINE [Suspect]
     Indication: ACUTE PSYCHOSIS
     Dosage: 100 MG, QD
     Route: 048
  4. MIRTAZAPINE [Suspect]
     Indication: ACUTE PSYCHOSIS
     Dosage: 15 MG, QD
     Route: 048
  5. FERROUS SULFATE TAB [Concomitant]
     Indication: HAEMOGLOBIN DECREASED
     Dosage: 325 MG, TID
     Route: 048

REACTIONS (13)
  - SEPTIC SHOCK [None]
  - ENTEROCOCCUS TEST POSITIVE [None]
  - FEBRILE NEUTROPENIA [None]
  - CARDIAC ARREST [None]
  - LUNG INFECTION [None]
  - CANDIDA TEST POSITIVE [None]
  - CELLULITIS [None]
  - CONVULSION [None]
  - ASPERGILLUS TEST POSITIVE [None]
  - ORAL CANDIDIASIS [None]
  - DEATH [None]
  - PHARYNGITIS [None]
  - AGRANULOCYTOSIS [None]
